FAERS Safety Report 25528778 (Version 1)
Quarter: 2025Q3

REPORT INFORMATION
  Report Type: Spontaneous
  Country: US (occurrence: US)
  Receive Date: 20250708
  Receipt Date: 20250708
  Transmission Date: 20251021
  Serious: Yes (Hospitalization, Other)
  Sender: Norvium Bioscience
  Company Number: US-Norvium Bioscience LLC-080358

PATIENT
  Age: 81 Year
  Sex: Male

DRUGS (1)
  1. PIOGLITAZONE HYDROCHLORIDE [Suspect]
     Active Substance: PIOGLITAZONE HYDROCHLORIDE
     Indication: Type 2 diabetes mellitus

REACTIONS (5)
  - Pleural effusion [Recovered/Resolved]
  - Generalised oedema [Recovering/Resolving]
  - Pancytopenia [Recovering/Resolving]
  - Hypoalbuminaemia [Recovering/Resolving]
  - Pneumothorax [Recovering/Resolving]
